FAERS Safety Report 6811791-4 (Version None)
Quarter: 2010Q2

REPORT INFORMATION
  Report Type: 
  Country: None (occurrence: None)
  Receive Date: 20100628
  Receipt Date: 20100615
  Transmission Date: 20101027
  Serious: Yes (Other)
  Sender: FDA-Public Use
  Company Number: 2010SCPR001428

PATIENT
  Age: 51 Year
  Sex: Male

DRUGS (10)
  1. DEXAMETHASONE [Suspect]
     Indication: MULTIPLE MYELOMA
     Dosage: 40 MG, WEEKLY
  2. DEXAMETHASONE [Suspect]
     Indication: RENAL IMPAIRMENT
     Dosage: 40 MG, WEEKLY
  3. BORTEZOMIB [Suspect]
     Indication: MULTIPLE MYELOMA
  4. BORTEZOMIB [Suspect]
     Indication: RENAL IMPAIRMENT
  5. DOXORUBICIN HCL [Suspect]
     Indication: MULTIPLE MYELOMA
  6. DOXORUBICIN HCL [Suspect]
     Indication: RENAL IMPAIRMENT
  7. OPIOIDS [Concomitant]
  8. METAMIZOL (METAMIZOLE MAGNESIUM) [Concomitant]
  9. ERYTHROPOIESIS- STIMULATING AGENTS [Concomitant]
  10. BISPHOSPHONATES [Concomitant]

REACTIONS (3)
  - NO THERAPEUTIC RESPONSE [None]
  - RENAL FAILURE [None]
  - STEM CELL TRANSPLANT [None]
